FAERS Safety Report 5909512-2 (Version None)
Quarter: 2008Q4

REPORT INFORMATION
  Report Type: 
  Country: None (occurrence: None)
  Receive Date: 20081002
  Receipt Date: 20080929
  Transmission Date: 20090506
  Serious: Yes (Hospitalization)
  Sender: FDA-Public Use
  Company Number: 100#08#2008-04852

PATIENT
  Age: 50 Year
  Sex: Male

DRUGS (2)
  1. SULFAMETHOXAZOLE AND TRIMETHOPRIM [Suspect]
     Indication: ARTHROPOD BITE
     Dates: start: 20070501
  2. CYCLOSPORINE [Suspect]
     Indication: PSORIASIS
     Dosage: 3 MG/KG

REACTIONS (8)
  - BILIRUBIN CONJUGATED INCREASED [None]
  - BLOOD URIC ACID INCREASED [None]
  - CONDITION AGGRAVATED [None]
  - DRUG INTERACTION [None]
  - ERYTHRODERMIC PSORIASIS [None]
  - MALAISE [None]
  - PLATELET COUNT DECREASED [None]
  - PSORIASIS [None]
